FAERS Safety Report 4446231-6 (Version None)
Quarter: 2004Q3

REPORT INFORMATION
  Report Type: 
  Country: None (occurrence: None)
  Receive Date: 20040902
  Receipt Date: 20040820
  Transmission Date: 20050211
  Serious: Yes (Life-Threatening, Other)
  Sender: FDA-Public Use
  Company Number: 2004230004JP

PATIENT
  Age: 35 Year
  Sex: Female

DRUGS (1)
  1. SOLU-MEDROL [Suspect]
     Indication: MULTIPLE SCLEROSIS
     Dosage: 1000 MG, QD, IV
     Route: 042
     Dates: start: 20040817

REACTIONS (3)
  - HYPERSENSITIVITY [None]
  - TRACHEAL OEDEMA [None]
  - VOMITING [None]
